FAERS Safety Report 4551964-7 (Version None)
Quarter: 2004Q4

REPORT INFORMATION
  Report Type: 
  Country: None (occurrence: None)
  Receive Date: 20041217
  Receipt Date: 20041012
  Transmission Date: 20050328
  Serious: No
  Sender: FDA-Public Use
  Company Number: 2004-BP-09852BP

PATIENT
  Sex: Female

DRUGS (6)
  1. SPIRIVA [Suspect]
     Indication: CHRONIC OBSTRUCTIVE AIRWAYS DISEASE
     Dosage: 18 MG (18 MCG), IH
     Route: 055
     Dates: start: 20041007, end: 20041009
  2. SPIRIVA [Suspect]
  3. ALBUTEROL [Concomitant]
  4. XANAX [Concomitant]
  5. NEXIUM [Concomitant]
  6. ALBUTEROL [Concomitant]

REACTIONS (2)
  - DYSPEPSIA [None]
  - ERUCTATION [None]
